FAERS Safety Report 5742794-9 (Version None)
Quarter: 2008Q2

REPORT INFORMATION
  Report Type: 
  Country: None (occurrence: None)
  Receive Date: 20080519
  Receipt Date: 20080515
  Transmission Date: 20081010
  Serious: Yes (Other)
  Sender: FDA-Public Use
  Company Number: DE-MERCK-0712DEU00015

PATIENT
  Age: 79 Year
  Sex: Male
  Weight: 98 kg

DRUGS (14)
  1. JANUVIA [Suspect]
     Indication: TYPE 2 DIABETES MELLITUS
     Route: 048
     Dates: start: 20070510, end: 20070101
  2. JANUVIA [Suspect]
     Route: 048
     Dates: start: 20070101, end: 20080201
  3. JANUVIA [Suspect]
     Route: 048
     Dates: start: 20080201
  4. AMLODIPINE BESYLATE [Concomitant]
     Indication: HYPERTENSION
     Route: 048
  5. ACETYLDIGOXIN [Concomitant]
     Indication: CARDIAC DISORDER
     Route: 048
  6. TORSEMIDE [Concomitant]
     Indication: HYPERTENSION
     Route: 048
  7. ENALAPRIL MALEATE [Concomitant]
     Indication: HYPERTENSION
     Route: 048
  8. ALLOPURINOL [Concomitant]
     Indication: BLOOD URIC ACID INCREASED
     Route: 048
  9. MAGNESIUM ASPARTATE AND POTASSIUM ASPARTATE [Concomitant]
     Indication: ARRHYTHMIA
     Route: 048
  10. PUMPKIN SEED AND SAW PALMETTO [Concomitant]
     Indication: PROSTATOMEGALY
     Route: 048
  11. METOPROLOL TARTRATE [Concomitant]
     Indication: HYPERTENSION
     Route: 048
  12. TAMSULOSIN HYDROCHLORIDE [Concomitant]
     Indication: PROSTATIC DISORDER
     Route: 048
  13. PHENPROCOUMON [Concomitant]
     Indication: THROMBOSIS PROPHYLAXIS
     Route: 048
  14. THIOCTIC ACID [Concomitant]
     Route: 065

REACTIONS (11)
  - AMAUROSIS FUGAX [None]
  - BALANCE DISORDER [None]
  - DIARRHOEA [None]
  - DRY MOUTH [None]
  - FLATULENCE [None]
  - LIPASE INCREASED [None]
  - OEDEMA [None]
  - OSTEOARTHRITIS [None]
  - RECTAL TENESMUS [None]
  - UPPER RESPIRATORY TRACT CONGESTION [None]
  - WRONG TECHNIQUE IN DRUG USAGE PROCESS [None]
